FAERS Safety Report 4759924-8 (Version None)
Quarter: 2005Q3

REPORT INFORMATION
  Report Type: 
  Country: None (occurrence: None)
  Receive Date: 20050831
  Receipt Date: 20050815
  Transmission Date: 20060218
  Serious: Yes (Hospitalization)
  Sender: FDA-Public Use
  Company Number: USA0508105578

PATIENT
  Age: 18 Year
  Sex: Male
  Weight: 95 kg

DRUGS (4)
  1. CYMBALTA [Suspect]
     Dosage: 60 MG DAY
     Dates: start: 20050101
  2. SEROQUEL [Concomitant]
  3. ESZOPICLONE [Concomitant]
  4. LAMICTAL [Concomitant]

REACTIONS (2)
  - JAW FRACTURE [None]
  - ROAD TRAFFIC ACCIDENT [None]
